FAERS Safety Report 14182650 (Version 1)
Quarter: 2017Q4

REPORT INFORMATION
  Report Type: Report from Study
  Country: US (occurrence: US)
  Receive Date: 20171113
  Receipt Date: 20171113
  Transmission Date: 20180321
  Serious: Yes (Hospitalization, Other)
  Sender: FDA-Public Use
  Company Number: US-BAYER-2017-087775

PATIENT
  Age: 75 Year
  Sex: Female

DRUGS (2)
  1. STIVARGA [Suspect]
     Active Substance: REGORAFENIB
     Indication: GASTROINTESTINAL STROMAL TUMOUR
     Dosage: DAILY DOSE 120 MG
     Route: 048
  2. STIVARGA [Suspect]
     Active Substance: REGORAFENIB
     Indication: MALIGNANT NEOPLASM OF UNKNOWN PRIMARY SITE
     Dosage: DAILY DOSE 120 MG
     Route: 048
     Dates: start: 20170807, end: 20170821

REACTIONS (4)
  - Hypertensive crisis [None]
  - Pruritus [Recovering/Resolving]
  - Hypertension [Unknown]
  - Hospitalisation [None]

NARRATIVE: CASE EVENT DATE: 20170426
